FAERS Safety Report 5091017-5 (Version None)
Quarter: 2006Q3

REPORT INFORMATION
  Report Type: 
  Country: None (occurrence: None)
  Receive Date: 20060829
  Receipt Date: 20050812
  Transmission Date: 20061208
  Serious: No
  Sender: FDA-Public Use
  Company Number: S2005US11980

PATIENT
  Age: 83 Year
  Sex: Female

DRUGS (1)
  1. ACYCLOVIR [Suspect]
     Indication: HERPES OPHTHALMIC
     Route: 065

REACTIONS (2)
  - ERYTHEMA [None]
  - SKIN EXFOLIATION [None]
